FAERS Safety Report 25191210 (Version 3)
Quarter: 2025Q4

REPORT INFORMATION
  Report Type: Report from Study
  Country: US (occurrence: US)
  Receive Date: 20250411
  Receipt Date: 20251028
  Transmission Date: 20260118
  Serious: No
  Sender: JOHNSON AND JOHNSON
  Company Number: US-JNJFOC-20250370992

PATIENT
  Age: 59 Year
  Sex: Male

DRUGS (1)
  1. TREMFYA [Suspect]
     Active Substance: GUSELKUMAB
     Indication: Rash
     Dosage: STRENGTH- 200.00 MG / 2.00 ML
     Route: 065

REACTIONS (4)
  - Device deployment issue [Unknown]
  - Product dose omission issue [Unknown]
  - Product label issue [Unknown]
  - Off label use [Unknown]

NARRATIVE: CASE EVENT DATE: 20250318
